FAERS Safety Report 8817552 (Version 1)
Quarter: 2012Q4

REPORT INFORMATION
  Report Type: 
  Country: GB (occurrence: GB)
  Receive Date: 20121004
  Receipt Date: 20121004
  Transmission Date: 20130627
  Serious: Yes (Hospitalization)
  Sender: FDA-Public Use
  Company Number: GB-TEVA-362617ISR

PATIENT
  Age: 42 Year
  Sex: Male

DRUGS (3)
  1. AZILECT [Suspect]
     Dosage: 1 Milligram Daily;
  2. ROPINIROLE [Suspect]
     Dosage: 18 Milligram Daily; Four months prior to presentation
  3. ROPINIROLE [Suspect]
     Dosage: 24 Milligram Daily; Taking while presentation of adverse events

REACTIONS (2)
  - Jealous delusion [Recovered/Resolved]
  - Suicidal ideation [Recovered/Resolved]
